FAERS Safety Report 10792928 (Version 1)
Quarter: 2015Q1

REPORT INFORMATION
  Report Type: Spontaneous
  Country: US (occurrence: None)
  Receive Date: 20150211
  Receipt Date: 20150211
  Transmission Date: 20150721
  Serious: Yes (Hospitalization, Other)
  Sender: FDA-Public Use
  Company Number: ADR-2014-02440

PATIENT
  Sex: Male

DRUGS (6)
  1. ANESTHESIA [Suspect]
     Active Substance: UNSPECIFIED INGREDIENT
  2. MIRALAX [Suspect]
     Active Substance: POLYETHYLENE GLYCOL 3350
  3. NEXIUM [Suspect]
     Active Substance: ESOMEPRAZOLE MAGNESIUM
  4. KEPPRA [Suspect]
     Active Substance: LEVETIRACETAM
  5. CLONIDINE. [Suspect]
     Active Substance: CLONIDINE
  6. LIORESAL [Suspect]
     Active Substance: BACLOFEN
     Indication: MUSCLE SPASTICITY

REACTIONS (6)
  - Sleep disorder [None]
  - Incision site abscess [None]
  - Vomiting [None]
  - Seizure [None]
  - Urinary retention [None]
  - Catheter site erosion [None]
